FAERS Safety Report 20623517 (Version 1)
Quarter: 2022Q1

REPORT INFORMATION
  Report Type: Spontaneous
  Country: US (occurrence: US)
  Receive Date: 20220322
  Receipt Date: 20220322
  Transmission Date: 20220423
  Serious: Yes (Other)
  Sender: FDA-Public Use
  Company Number: US-ACERUSPHRM-2022-US-000017

PATIENT
  Age: 16 Year

DRUGS (6)
  1. TESTOSTERONE [Suspect]
     Active Substance: TESTOSTERONE
     Indication: Product use issue
     Route: 058
  2. BENZOYL PEROXIDE [Concomitant]
     Active Substance: BENZOYL PEROXIDE
     Indication: Acne
  3. PREDNISONE [Concomitant]
     Active Substance: PREDNISONE
     Indication: Acne fulminans
     Dosage: TAPERED DOSE
  4. ISOTRETINOIN [Concomitant]
     Active Substance: ISOTRETINOIN
     Indication: Acne fulminans
  5. DOXYCYCLINE [Concomitant]
     Active Substance: DOXYCYCLINE
     Indication: Acne fulminans
  6. TRETINOIN [Concomitant]
     Active Substance: TRETINOIN
     Indication: Acne

REACTIONS (2)
  - Product use issue [Recovering/Resolving]
  - Acne fulminans [Recovering/Resolving]
